FAERS Safety Report 23956666 (Version 2)
Quarter: 2024Q3

REPORT INFORMATION
  Report Type: Spontaneous
  Country: US (occurrence: US)
  Receive Date: 20240610
  Receipt Date: 20240813
  Transmission Date: 20241016
  Serious: No
  Sender: TEVA
  Company Number: US-TEVA-VS-3203527

PATIENT
  Age: 72 Year
  Sex: Male
  Weight: 89.77 kg

DRUGS (3)
  1. AUSTEDO [Suspect]
     Active Substance: DEUTETRABENAZINE
     Indication: Dyskinesia
     Dosage: 1 TABLET BY MOUTH TWICE DAILY
     Route: 048
  2. AUSTEDO [Suspect]
     Active Substance: DEUTETRABENAZINE
     Indication: Dyskinesia
     Dosage: 9 MG, TAKE 1 TABLET WITH FOOD ONCE A DAY
     Route: 065
  3. AUSTEDO [Suspect]
     Active Substance: DEUTETRABENAZINE
     Indication: Dyskinesia
     Route: 065
     Dates: start: 202404

REACTIONS (4)
  - Epistaxis [Unknown]
  - Hypersensitivity [Unknown]
  - Stress [Unknown]
  - Off label use [Unknown]
